FAERS Safety Report 7417771-2 (Version None)
Quarter: 2011Q2

REPORT INFORMATION
  Report Type: 
  Country: None (occurrence: None)
  Receive Date: 20110415
  Receipt Date: 20110406
  Transmission Date: 20111010
  Serious: Yes (Death, Hospitalization, Other)
  Sender: FDA-Public Use
  Company Number: JP-PFIZER INC-2011081307

PATIENT
  Age: 91 Year
  Sex: Female

DRUGS (1)
  1. AMIODARONE HCL [Suspect]
     Indication: VENTRICULAR EXTRASYSTOLES
     Dosage: UNK

REACTIONS (4)
  - INTERSTITIAL LUNG DISEASE [None]
  - RESPIRATORY FAILURE [None]
  - PNEUMONIA BACTERIAL [None]
  - PNEUMOMEDIASTINUM [None]
